FAERS Safety Report 4398474-8 (Version None)
Quarter: 2004Q3

REPORT INFORMATION
  Report Type: 
  Country: None (occurrence: None)
  Receive Date: 20040712
  Receipt Date: 20040629
  Transmission Date: 20050211
  Serious: Yes (Other)
  Sender: FDA-Public Use
  Company Number: A-CH2004-05039

PATIENT
  Age: 65 Year
  Sex: Male

DRUGS (8)
  1. TRACLEER [Suspect]
     Indication: PULMONARY HYPERTENSION
     Dosage: SEE IMAGE
     Route: 048
     Dates: start: 20031020, end: 20031123
  2. TRACLEER [Suspect]
     Indication: PULMONARY HYPERTENSION
     Dosage: SEE IMAGE
     Route: 048
     Dates: start: 20031124, end: 20040113
  3. LASIX [Concomitant]
  4. ALDACTONE [Concomitant]
  5. THEOSTAT (THEOPHYLLINE) [Concomitant]
  6. LEVOTHYROXINE SODIUM [Concomitant]
  7. ALLOPURINOL [Concomitant]
  8. PREVISCAN (FLUINDIONE) [Concomitant]

REACTIONS (8)
  - CONDITION AGGRAVATED [None]
  - COUGH [None]
  - DRUG INEFFECTIVE [None]
  - HOT FLUSH [None]
  - PAIN [None]
  - PRURITUS [None]
  - PULMONARY HYPERTENSION [None]
  - THERAPY NON-RESPONDER [None]
